FAERS Safety Report 9759745 (Version 2)
Quarter: 2015Q3

REPORT INFORMATION
  Report Type: Spontaneous
  Country: US (occurrence: US)
  Receive Date: 20131216
  Receipt Date: 20150806
  Transmission Date: 20151125
  Serious: No
  Sender: FDA-Public Use
  Company Number: US-GILEAD-2010-0029107

PATIENT
  Age: 69 Year
  Sex: Female
  Weight: 47.17 kg

DRUGS (9)
  1. ATENOLOL. [Concomitant]
     Active Substance: ATENOLOL
  2. OXYGEN. [Concomitant]
     Active Substance: OXYGEN
  3. REVATIO [Concomitant]
     Active Substance: SILDENAFIL CITRATE
  4. LETAIRIS [Suspect]
     Active Substance: AMBRISENTAN
     Indication: PULMONARY ARTERIAL HYPERTENSION
     Route: 048
     Dates: start: 20090528
  5. KLONOPIN [Concomitant]
     Active Substance: CLONAZEPAM
  6. LASIX [Concomitant]
     Active Substance: FUROSEMIDE
  7. COUMADIN [Concomitant]
     Active Substance: WARFARIN SODIUM
  8. TRAMADOL. [Concomitant]
     Active Substance: TRAMADOL
  9. LEXAPRO [Concomitant]
     Active Substance: ESCITALOPRAM OXALATE

REACTIONS (1)
  - Dizziness [Unknown]

NARRATIVE: CASE EVENT DATE: 20100510
